FAERS Safety Report 5203354-1 (Version None)
Quarter: 2007Q1

REPORT INFORMATION
  Report Type: 
  Country: None (occurrence: None)
  Receive Date: 20070110
  Receipt Date: 20070103
  Transmission Date: 20070707
  Serious: Yes (Hospitalization, Other)
  Sender: FDA-Public Use
  Company Number: AU-JNJFOC-20061101859

PATIENT
  Sex: Male
  Weight: 1.46 kg

DRUGS (3)
  1. RISPERDAL CONSTA [Suspect]
     Indication: DRUG EXPOSURE DURING PREGNANCY
     Route: 015
  2. RISPERIDONE [Suspect]
     Indication: DRUG EXPOSURE DURING PREGNANCY
     Route: 015
  3. EPILIM [Concomitant]
     Indication: DRUG EXPOSURE DURING PREGNANCY
     Route: 015

REACTIONS (5)
  - DRUG WITHDRAWAL SYNDROME [None]
  - FEELING JITTERY [None]
  - MYOCLONUS [None]
  - PREMATURE BABY [None]
  - SEPSIS [None]
